FAERS Safety Report 23786581 (Version 2)
Quarter: 2024Q2

REPORT INFORMATION
  Report Type: Spontaneous
  Country: GB (occurrence: GB)
  Receive Date: 20240426
  Receipt Date: 20240513
  Transmission Date: 20240715
  Serious: Yes (Other)
  Sender: FDA-Public Use
  Company Number: GB-GILEAD-2024-0670559

PATIENT
  Age: 29 Year
  Sex: Female

DRUGS (9)
  1. CAYSTON [Suspect]
     Active Substance: AZTREONAM
     Indication: Cystic fibrosis
     Dosage: ALTERNATING MONTHS
     Route: 065
  2. VITAMIN K [Concomitant]
     Active Substance: PHYTONADIONE
     Indication: Cystic fibrosis
     Dosage: 10 MG, QD
     Route: 048
  3. NUTRIZYM [PANCREATIN] [Concomitant]
     Indication: Cystic fibrosis
     Dosage: 1-10 CAPSULES TDS
     Route: 048
     Dates: start: 20231124
  4. VITAMIN A + D [ERGOCALCIFEROL;RETINOL] [Concomitant]
     Indication: Cystic fibrosis
     Dosage: 2 DOSAGE FORM, QD
     Route: 048
     Dates: start: 20230405
  5. ELEXACAFTOR\IVACAFTOR\TEZACAFTOR [Concomitant]
     Active Substance: ELEXACAFTOR\IVACAFTOR\TEZACAFTOR
     Indication: Cystic fibrosis
     Dosage: 2 TABS OM ALTERNATE DAYS
     Route: 048
     Dates: start: 20231123
  6. KALYDECO [Concomitant]
     Active Substance: IVACAFTOR
     Indication: Cystic fibrosis
     Dosage: 150 MG, OM ALTERNATE DAYS
     Route: 048
     Dates: start: 20231123
  7. BECLOMETHASONE\FORMOTEROL [Concomitant]
     Active Substance: BECLOMETHASONE\FORMOTEROL
     Indication: Cystic fibrosis
     Dosage: 2 DOSAGE FORM, BID ( 100/6)
     Route: 055
     Dates: start: 20200310
  8. CITALOPRAM [Concomitant]
     Active Substance: CITALOPRAM\CITALOPRAM HYDROBROMIDE
     Indication: Depression
     Dosage: 30 MG, QD
     Route: 048
     Dates: start: 20190822
  9. VIT E [TOCOPHEROL] [Concomitant]
     Indication: Cystic fibrosis
     Dosage: 200 UNIT OM
     Route: 048
     Dates: start: 20190822

REACTIONS (1)
  - Cystic fibrosis [Unknown]
